FAERS Safety Report 16259361 (Version 1)
Quarter: 2019Q2

REPORT INFORMATION
  Report Type: Spontaneous
  Country: GB (occurrence: GB)
  Receive Date: 20190501
  Receipt Date: 20190501
  Transmission Date: 20190711
  Serious: Yes (Other)
  Sender: FDA-Public Use
  Company Number: GB-ACCORD-101901

PATIENT
  Age: 86 Year
  Sex: Female
  Weight: 35 kg

DRUGS (6)
  1. CODEINE [Concomitant]
     Active Substance: CODEINE
     Dates: start: 20180411
  2. DONEPEZIL/DONEPEZIL HYDROCHLORIDE [Concomitant]
     Indication: DEMENTIA
  3. FUROSEMIDE. [Concomitant]
     Active Substance: FUROSEMIDE
     Indication: JOINT SWELLING
  4. ZOLEDRONIC ACID [Suspect]
     Active Substance: ZOLEDRONIC ACID
     Indication: PRODUCT USED FOR UNKNOWN INDICATION
     Dosage: 4MG/5ML, ALSO RECEIVED ON MAY-2017
     Dates: start: 201601
  5. LEVOTHYROXINE. [Concomitant]
     Active Substance: LEVOTHYROXINE
     Indication: HYPOTHYROIDISM
  6. CALCIUM GLUCONATE. [Concomitant]
     Active Substance: CALCIUM GLUCONATE
     Indication: OSTEOPOROSIS

REACTIONS (2)
  - Otitis externa [Recovering/Resolving]
  - Cholesteatoma [Unknown]

NARRATIVE: CASE EVENT DATE: 2017
